FAERS Safety Report 6527081-3 (Version None)
Quarter: 2009Q4

REPORT INFORMATION
  Report Type: 
  Country: None (occurrence: None)
  Receive Date: 20091222
  Receipt Date: 20091020
  Transmission Date: 20100525
  Serious: No
  Sender: FDA-Public Use
  Company Number: 091021-0001119

PATIENT
  Age: 20 Month
  Sex: Female
  Weight: 11.7 kg

DRUGS (5)
  1. SABRIL [Suspect]
     Indication: INFANTILE SPASMS
     Dosage: 750 MG;BID;PO
     Route: 048
     Dates: start: 20091012
  2. PHENOBARBITAL TAB [Concomitant]
  3. KEPPRA [Concomitant]
  4. ACTH [Concomitant]
  5. TOPAMAX [Concomitant]

REACTIONS (2)
  - DERMATITIS DIAPER [None]
  - URINE ODOUR ABNORMAL [None]
